FAERS Safety Report 8557623-8 (Version None)
Quarter: 2012Q3

REPORT INFORMATION
  Report Type: 
  Country: None (occurrence: None)
  Receive Date: 20120801
  Receipt Date: 20120723
  Transmission Date: 20120928
  Serious: Yes (Other)
  Sender: FDA-Public Use
  Company Number: BR-ASTRAZENECA-2012SE52163

PATIENT
  Age: 48 Year
  Sex: Male

DRUGS (3)
  1. AEROLIN SPRAY [Concomitant]
     Indication: BRONCHITIS
     Route: 055
  2. METOPROLOL SUCCINATE [Suspect]
     Indication: HYPERTENSION
     Route: 048
     Dates: start: 20100101, end: 20120720
  3. METOPROLOL SUCCINATE [Suspect]
     Route: 048
     Dates: start: 20120721

REACTIONS (4)
  - MALAISE [None]
  - OFF LABEL USE [None]
  - BLOOD PRESSURE INCREASED [None]
  - SYNCOPE [None]
